FAERS Safety Report 6986793-8 (Version None)
Quarter: 2010Q3

REPORT INFORMATION
  Report Type: 
  Country: None (occurrence: None)
  Receive Date: 20100915
  Receipt Date: 20090806
  Transmission Date: 20110219
  Serious: No
  Sender: FDA-Public Use
  Company Number: US-WYE-H10500809

PATIENT
  Age: 60 Year
  Sex: Female
  Weight: 79.45 kg

DRUGS (5)
  1. PRISTIQ [Suspect]
     Indication: DEPRESSION
     Route: 048
     Dates: start: 20090728
  2. SIMVASTATIN [Concomitant]
  3. SYNTHROID [Concomitant]
  4. VERAPAMIL [Concomitant]
  5. METOCLOPRAMIDE [Concomitant]

REACTIONS (1)
  - INSOMNIA [None]
